FAERS Safety Report 15720035 (Version 1)
Quarter: 2018Q4

REPORT INFORMATION
  Report Type: Spontaneous
  Country: FR (occurrence: FR)
  Receive Date: 20181213
  Receipt Date: 20181213
  Transmission Date: 20190205
  Serious: Yes (Hospitalization, Other)
  Sender: FDA-Public Use
  Company Number: FR-BAYER-2018-224701

PATIENT
  Age: 29 Year
  Sex: Female

DRUGS (1)
  1. KYLEENA [Suspect]
     Active Substance: LEVONORGESTREL
     Dosage: 17.5 MCG/24HR, CONT
     Route: 015
     Dates: start: 20180620, end: 2018

REACTIONS (6)
  - Abdominal pain [None]
  - Ectopic pregnancy with contraceptive device [None]
  - Haematosalpinx [None]
  - Peritoneal haemorrhage [None]
  - Pelvic fluid collection [None]
  - Drug ineffective [None]

NARRATIVE: CASE EVENT DATE: 2018
